FAERS Safety Report 24288702 (Version 2)
Quarter: 2024Q3

REPORT INFORMATION
  Report Type: Spontaneous
  Country: NL (occurrence: NL)
  Receive Date: 20240906
  Receipt Date: 20240912
  Transmission Date: 20241017
  Serious: Yes (Death, Life-Threatening, Other)
  Sender: AUROBINDO
  Company Number: NL-LRB-00999478

PATIENT
  Sex: Male
  Weight: 70 kg

DRUGS (3)
  1. CLOZAPINE [Suspect]
     Active Substance: CLOZAPINE
     Indication: Schizophrenia
     Dosage: 400 MILLIGRAM, ONCE A DAY(1X TABLET 100MG BIJ LUNCH1X TABLET 300MG AN)
     Route: 065
     Dates: start: 20120601
  2. TAMSULOSIN [Concomitant]
     Active Substance: TAMSULOSIN
     Indication: Product used for unknown indication
     Dosage: UNK
     Route: 065
  3. PAROXETINE [Concomitant]
     Active Substance: PAROXETINE
     Indication: Product used for unknown indication
     Dosage: UNK
     Route: 065

REACTIONS (1)
  - Ileus paralytic [Fatal]
